FAERS Safety Report 8590782-X (Version None)
Quarter: 2012Q3

REPORT INFORMATION
  Report Type: 
  Country: None (occurrence: None)
  Receive Date: 20120813
  Receipt Date: 20120718
  Transmission Date: 20120928
  Serious: Yes (Hospitalization, Other)
  Sender: FDA-Public Use
  Company Number: JP-009507513-1208JPN005215

PATIENT

DRUGS (8)
  1. REBETOL [Suspect]
     Route: 048
     Dates: start: 20120413
  2. TELAVIC [Suspect]
     Route: 048
     Dates: start: 20120426
  3. CERONEED [Concomitant]
     Route: 042
     Dates: start: 20120412, end: 20120426
  4. TELAVIC [Suspect]
     Route: 048
     Dates: start: 20120501
  5. TELAVIC [Suspect]
     Indication: HEPATITIS C
     Route: 048
     Dates: start: 20120216
  6. REBETOL [Suspect]
     Indication: HEPATITIS C
     Route: 048
     Dates: start: 20120216
  7. PEG-INTRON [Suspect]
     Indication: HEPATITIS C
     Dosage: 1.5MCG/KG/WEEK
     Route: 058
     Dates: start: 20120216
  8. REBETOL [Suspect]
     Route: 048
     Dates: start: 20120405

REACTIONS (2)
  - URINARY TRACT INFECTION [None]
  - ANAEMIA [None]
